FAERS Safety Report 8295575-9 (Version None)
Quarter: 2012Q2

REPORT INFORMATION
  Report Type: 
  Country: None (occurrence: None)
  Receive Date: 20120418
  Receipt Date: 20120416
  Transmission Date: 20120825
  Serious: Yes (Death)
  Sender: FDA-Public Use
  Company Number: US-CELGENEUS-163-21880-12031346

PATIENT
  Sex: Male
  Weight: 93.978 kg

DRUGS (10)
  1. FENOFIBRATE [Concomitant]
     Dosage: 54 MILLIGRAM
     Route: 065
  2. METOPROLOL TARTRATE [Concomitant]
     Route: 065
  3. DEXAMETHASONE [Concomitant]
     Indication: MULTIPLE MYELOMA
     Dosage: 40 MILLIGRAM
     Route: 065
     Dates: start: 20120223, end: 20120307
  4. SENOKOT [Concomitant]
     Dosage: 8.6 MILLIGRAM
     Route: 065
  5. LISINOPRIL [Concomitant]
     Dosage: 2.5 MILLIGRAM
     Route: 065
  6. DULCOLAX [Concomitant]
     Dosage: 10 MILLIGRAM
     Route: 065
  7. SIMVASTATIN [Concomitant]
     Dosage: 40 MILLIGRAM
     Route: 065
  8. SYNTHROID [Concomitant]
     Dosage: 25 MILLIGRAM
     Route: 065
  9. REVLIMID [Suspect]
     Indication: MULTIPLE MYELOMA
     Dosage: 25 MILLIGRAM
     Route: 048
     Dates: start: 20120209, end: 20120307
  10. LACTULOSE [Concomitant]
     Dosage: 30 GRAM
     Route: 065

REACTIONS (1)
  - RESPIRATORY FAILURE [None]
